FAERS Safety Report 13129250 (Version 1)
Quarter: 2017Q1

REPORT INFORMATION
  Report Type: Spontaneous
  Country: US (occurrence: US)
  Receive Date: 20170117
  Receipt Date: 20170117
  Transmission Date: 20170428
  Serious: No
  Sender: FDA-Public Use
  Company Number: None

PATIENT
  Sex: Female

DRUGS (1)
  1. HUMIRA [Suspect]
     Active Substance: ADALIMUMAB
     Indication: RHEUMATOID ARTHRITIS
     Dosage: 40MG/.8ML INJECT 1 PEN EVERY 14 DAYS SUBCUTANEOUSLY
     Route: 058
     Dates: start: 20161221

REACTIONS (4)
  - Injection site reaction [None]
  - Injection site erythema [None]
  - Injection site bruising [None]
  - Injection site pruritus [None]
